FAERS Safety Report 10235705 (Version 1)
Quarter: 2014Q2

REPORT INFORMATION
  Report Type: Spontaneous
  Country: GB (occurrence: GB)
  Receive Date: 20140613
  Receipt Date: 20140613
  Transmission Date: 20141212
  Serious: Yes (Other)
  Sender: FDA-Public Use
  Company Number: GB-TEVA-486897ISR

PATIENT
  Age: 15 Year
  Sex: Female

DRUGS (2)
  1. LAMOTRIGINE [Suspect]
     Indication: EPILEPSY
     Dosage: 75 MILLIGRAM DAILY;
     Route: 048
  2. CLOBAZAM [Interacting]
     Indication: EPILEPSY
     Dosage: 5 MILLIGRAM DAILY;
     Route: 048
     Dates: start: 201305

REACTIONS (2)
  - Convulsion [Unknown]
  - Drug interaction [Unknown]
